FAERS Safety Report 25502714 (Version 2)
Quarter: 2025Q4

REPORT INFORMATION
  Report Type: Report from Study
  Country: BR (occurrence: BR)
  Receive Date: 20250702
  Receipt Date: 20251218
  Transmission Date: 20260117
  Serious: Yes (Other)
  Sender: JOHNSON AND JOHNSON
  Company Number: BR-JNJFOC-20250633012

PATIENT
  Age: 19 Year
  Sex: Female
  Weight: 52 kg

DRUGS (2)
  1. REMICADE [Suspect]
     Active Substance: INFLIXIMAB
     Indication: Crohn^s disease
     Dosage: THE PATIENT HAD USING THE MEDICATION EVERY 4 WEEKS SINCE JUL-2023
     Route: 041
  2. REMICADE [Suspect]
     Active Substance: INFLIXIMAB
     Dosage: THE PATIENT HAD USING THE MEDICATION EVERY 4 WEEKS SINCE JUL-2023
     Route: 041

REACTIONS (4)
  - Crohn^s disease [Recovering/Resolving]
  - Sepsis [Unknown]
  - Off label use [Unknown]
  - Drug ineffective [Unknown]
